FAERS Safety Report 22284943 (Version 1)
Quarter: 2023Q2

REPORT INFORMATION
  Report Type: Report from Study
  Country: GB (occurrence: GB)
  Receive Date: 20230504
  Receipt Date: 20230504
  Transmission Date: 20230721
  Serious: Yes (Hospitalization)
  Sender: FDA-Public Use
  Company Number: GB-JNJFOC-20230458982

PATIENT
  Age: 63 Year
  Sex: Female

DRUGS (8)
  1. BORTEZOMIB [Suspect]
     Active Substance: BORTEZOMIB
     Indication: Plasma cell myeloma
     Dosage: 2.25 MILLIGRAM
     Route: 058
     Dates: start: 20180119
  2. DARATUMUMAB [Suspect]
     Active Substance: DARATUMUMAB
     Indication: Plasma cell myeloma
     Dosage: 1800 MILLIGRAM
     Route: 058
     Dates: start: 20180119
  3. LENALIDOMIDE [Suspect]
     Active Substance: LENALIDOMIDE
     Indication: Plasma cell myeloma
     Dosage: 10 MILLIGRAM
     Route: 048
     Dates: start: 20180119
  4. CYCLOPHOSPHAMIDE [Suspect]
     Active Substance: CYCLOPHOSPHAMIDE
     Indication: Plasma cell myeloma
     Dosage: 2700 MILLIGRAM, QD
     Route: 042
     Dates: start: 20180514
  5. DEXAMETHASONE [Suspect]
     Active Substance: DEXAMETHASONE
     Indication: Plasma cell myeloma
     Dosage: 5 MILLIGRAM
     Route: 048
     Dates: start: 20180119
  6. CYCLOPHOSPHAMIDE [Suspect]
     Active Substance: CYCLOPHOSPHAMIDE
     Indication: Plasma cell myeloma
     Dosage: 500 MILLIGRAM
     Route: 048
     Dates: start: 20180119
  7. FILGRASTIM [Suspect]
     Active Substance: FILGRASTIM
     Indication: Plasma cell myeloma
     Dosage: 480 MICROGRAM
     Route: 058
     Dates: start: 20180515
  8. MELPHALAN [Suspect]
     Active Substance: MELPHALAN
     Indication: Plasma cell myeloma
     Dosage: 360 MILLIGRAM
     Route: 042
     Dates: start: 20180613

REACTIONS (1)
  - Pneumonia bacterial [Recovered/Resolved]

NARRATIVE: CASE EVENT DATE: 20230419
